FAERS Safety Report 7609482-5 (Version None)
Quarter: 2011Q3

REPORT INFORMATION
  Report Type: 
  Country: None (occurrence: None)
  Receive Date: 20110713
  Receipt Date: 20110713
  Transmission Date: 20111222
  Serious: Yes (Life-Threatening, Hospitalization, Other)
  Sender: FDA-Public Use
  Company Number: None

PATIENT
  Age: 30 Year
  Sex: Female
  Weight: 83.4619 kg

DRUGS (1)
  1. DESOGEN [Suspect]
     Indication: ORAL CONTRACEPTION
     Dosage: ONE PILL EVERY DAY PO
     Route: 048
     Dates: start: 20060101, end: 20110528

REACTIONS (4)
  - PORTAL VEIN OCCLUSION [None]
  - MESENTERIC VEIN THROMBOSIS [None]
  - ABDOMINAL PAIN [None]
  - SPLENIC VEIN THROMBOSIS [None]
